FAERS Safety Report 4882800-7 (Version None)
Quarter: 2005Q4

REPORT INFORMATION
  Report Type: 
  Country: None (occurrence: None)
  Receive Date: 20051201
  Receipt Date: 20050927
  Transmission Date: 20060501
  Serious: No
  Sender: FDA-Public Use
  Company Number: 2005PV002582

PATIENT
  Age: 70 Year
  Sex: Female
  Weight: 145.6046 kg

DRUGS (4)
  1. BYETTA [Suspect]
     Indication: DIABETES MELLITUS NON-INSULIN-DEPENDENT
     Dosage: 5 MCG;BID;SC
     Route: 058
     Dates: start: 20050915
  2. AVANDIA [Concomitant]
  3. GLUCOTROL [Concomitant]
  4. VICODIN [Concomitant]

REACTIONS (5)
  - CHILLS [None]
  - FLUSHING [None]
  - NAUSEA [None]
  - VOMITING [None]
  - WEIGHT DECREASED [None]
